FAERS Safety Report 12807546 (Version 4)
Quarter: 2016Q4

REPORT INFORMATION
  Report Type: Report from Study
  Country: CA (occurrence: CA)
  Receive Date: 20161004
  Receipt Date: 20161223
  Transmission Date: 20170207
  Serious: Yes (Hospitalization, Other)
  Sender: FDA-Public Use
  Company Number: PHHY2015CA105516

PATIENT
  Age: 63 Year
  Sex: Male

DRUGS (5)
  1. EXJADE [Suspect]
     Active Substance: DEFERASIROX
     Dosage: 1000 MG, QD
     Route: 048
     Dates: start: 20150827, end: 20160920
  2. PANTOLOC [Concomitant]
     Active Substance: PANTOPRAZOLE SODIUM
     Indication: PRODUCT USED FOR UNKNOWN INDICATION
     Route: 065
  3. EXJADE [Suspect]
     Active Substance: DEFERASIROX
     Indication: MYELODYSPLASTIC SYNDROME
     Dosage: 750 MG, QD
     Route: 048
     Dates: start: 20150827
  4. EXJADE [Suspect]
     Active Substance: DEFERASIROX
     Dosage: 1000 MG, QD
     Route: 048
  5. EXJADE [Suspect]
     Active Substance: DEFERASIROX
     Dosage: 500 MG, QD
     Route: 048

REACTIONS (22)
  - Haemorrhage [Unknown]
  - Bladder irritation [Recovered/Resolved]
  - Amnesia [Unknown]
  - Liver disorder [Unknown]
  - Abdominal pain upper [Unknown]
  - Drug ineffective [Unknown]
  - Mental impairment [Unknown]
  - Pyrexia [Unknown]
  - Hepatic infection [Unknown]
  - Red blood cell count abnormal [Unknown]
  - Decreased appetite [Unknown]
  - Insomnia [Unknown]
  - Pneumonia [Unknown]
  - Pain [Recovered/Resolved]
  - Poor quality sleep [Unknown]
  - Burning sensation [Recovered/Resolved]
  - Faeces discoloured [Unknown]
  - Enzyme level increased [Unknown]
  - Malaise [Unknown]
  - Blood iron decreased [Unknown]
  - Pain in extremity [Recovered/Resolved]
  - Haemoglobin decreased [Unknown]

NARRATIVE: CASE EVENT DATE: 20160919
